FAERS Safety Report 18355725 (Version 8)
Quarter: 2021Q2

REPORT INFORMATION
  Report Type: Report from Study
  Country: US (occurrence: US)
  Receive Date: 20201007
  Receipt Date: 20210622
  Transmission Date: 20210717
  Serious: No
  Sender: FDA-Public Use
  Company Number: NVSC2020US270935

PATIENT
  Age: 32 Year
  Sex: Male

DRUGS (3)
  1. GILENYA [Suspect]
     Active Substance: FINGOLIMOD HYDROCHLORIDE
     Dosage: 0.5 MG, QD
     Route: 048
  2. GILENYA [Suspect]
     Active Substance: FINGOLIMOD HYDROCHLORIDE
     Indication: MULTIPLE SCLEROSIS
     Dosage: 0.5 MG, QD
     Route: 048
  3. GILENYA [Suspect]
     Active Substance: FINGOLIMOD HYDROCHLORIDE
     Dosage: 0.5 MG, QD
     Route: 048

REACTIONS (15)
  - Headache [Unknown]
  - Sleep disorder [Unknown]
  - Mental status changes [Unknown]
  - Poverty of speech [Unknown]
  - Neuralgia [Unknown]
  - Product dose omission issue [Unknown]
  - Hypoaesthesia [Not Recovered/Not Resolved]
  - Rash erythematous [Unknown]
  - Scar [Unknown]
  - Stress [Unknown]
  - Blister [Unknown]
  - Back pain [Not Recovered/Not Resolved]
  - Herpes zoster [Unknown]
  - Paraesthesia [Unknown]
  - Eye pain [Unknown]

NARRATIVE: CASE EVENT DATE: 202102
